FAERS Safety Report 16163945 (Version 1)
Quarter: 2019Q2

REPORT INFORMATION
  Report Type: Spontaneous
  Country: US (occurrence: US)
  Receive Date: 20190405
  Receipt Date: 20190405
  Transmission Date: 20190711
  Serious: No
  Sender: FDA-Public Use
  Company Number: US-AMREGENT-20190337

PATIENT
  Sex: Female

DRUGS (1)
  1. HYDROXYPROGESTERONE CAPROATE  INJECTION, USP (0517-1767-01) [Suspect]
     Active Substance: HYDROXYPROGESTERONE CAPROATE
     Dosage: UNKNOWN; WEEKLY
     Route: 051
     Dates: start: 201812, end: 20190218

REACTIONS (10)
  - Injection site swelling [Unknown]
  - Product quality issue [Unknown]
  - Headache [Unknown]
  - Injection site warmth [Unknown]
  - Nausea [Unknown]
  - Injection site erythema [Unknown]
  - Vomiting [Unknown]
  - Hot flush [Unknown]
  - Abdominal pain upper [Recovered/Resolved]
  - Injection site bruising [Unknown]

NARRATIVE: CASE EVENT DATE: 201902
